FAERS Safety Report 20196101 (Version 2)
Quarter: 2022Q1

REPORT INFORMATION
  Report Type: Spontaneous
  Country: IE (occurrence: IE)
  Receive Date: 20211216
  Receipt Date: 20220201
  Transmission Date: 20220424
  Serious: Yes (Congenital Anomaly, Other)
  Sender: FDA-Public Use
  Company Number: None

PATIENT
  Sex: Male

DRUGS (1)
  1. DOXYCYCLINE HYCLATE [Suspect]
     Active Substance: DOXYCYCLINE HYCLATE
     Indication: Prophylaxis
     Dosage: 100 MG (EXPOSURE TO DOXYCYCLINE WAS AT 6 WEEKS GESTATION)
     Route: 064
     Dates: start: 20200603, end: 20200612

REACTIONS (7)
  - Foetal exposure during pregnancy [Unknown]
  - Foetal disorder [Not Recovered/Not Resolved]
  - Oesophageal atresia [Unknown]
  - Double outlet right ventricle [Unknown]
  - Congenital anomaly [Unknown]
  - Tracheo-oesophageal fistula [Unknown]
  - Ventricular septal defect [Unknown]

NARRATIVE: CASE EVENT DATE: 20200603
